FAERS Safety Report 5082489-0 (Version None)
Quarter: 2006Q3

REPORT INFORMATION
  Report Type: 
  Country: None (occurrence: None)
  Receive Date: 20060817
  Receipt Date: 20060809
  Transmission Date: 20061208
  Serious: Yes (Death, Hospitalization, Other)
  Sender: FDA-Public Use
  Company Number: PHEH2006US10227

PATIENT
  Age: 18 Year
  Sex: Female
  Weight: 50.4 kg

DRUGS (2)
  1. EXJADE [Suspect]
     Dosage: UNK, UNK
     Route: 048
     Dates: start: 20060201, end: 20060802
  2. ALBUTEROL [Concomitant]
     Indication: BRONCHIAL HYPERREACTIVITY

REACTIONS (43)
  - ABDOMINAL PAIN [None]
  - ACIDOSIS [None]
  - AMENORRHOEA [None]
  - ANURIA [None]
  - BALANCE DISORDER [None]
  - BLOOD GASES ABNORMAL [None]
  - BLOOD LACTIC ACID INCREASED [None]
  - BLOOD MAGNESIUM INCREASED [None]
  - BLOOD SODIUM DECREASED [None]
  - BRADYCARDIA [None]
  - BRAIN NATRIURETIC PEPTIDE INCREASED [None]
  - CARDIAC FAILURE ACUTE [None]
  - CARDIOMEGALY [None]
  - CENTRAL VENOUS PRESSURE INCREASED [None]
  - CHEST PAIN [None]
  - DECREASED APPETITE [None]
  - DEPRESSED LEVEL OF CONSCIOUSNESS [None]
  - DIABETES MELLITUS [None]
  - DIZZINESS [None]
  - DYSPNOEA [None]
  - EJECTION FRACTION DECREASED [None]
  - FATIGUE [None]
  - FLUID RETENTION [None]
  - HEADACHE [None]
  - HEART RATE INCREASED [None]
  - HYPERGLYCAEMIA [None]
  - HYPOAESTHESIA [None]
  - HYPOTENSION [None]
  - INTUBATION [None]
  - KETONURIA [None]
  - MULTI-ORGAN FAILURE [None]
  - MUSCLE SPASMS [None]
  - NAUSEA [None]
  - OXYGEN SATURATION DECREASED [None]
  - POLYURIA [None]
  - RENAL IMPAIRMENT [None]
  - RESPIRATORY FAILURE [None]
  - SERUM FERRITIN INCREASED [None]
  - SWAN GANZ CATHETER PLACEMENT [None]
  - THIRST [None]
  - TROPONIN INCREASED [None]
  - VISION BLURRED [None]
  - WEIGHT DECREASED [None]
